FAERS Safety Report 8925161 (Version 1)
Quarter: 2012Q4

REPORT INFORMATION
  Report Type: Report from Study
  Country: CA (occurrence: CA)
  Receive Date: 20121126
  Receipt Date: 20121126
  Transmission Date: 20130627
  Serious: Yes (Death, Hospitalization)
  Sender: FDA-Public Use
  Company Number: CA-ROCHE-1159712

PATIENT
  Sex: Male
  Weight: 78 kg

DRUGS (7)
  1. TOCILIZUMAB [Suspect]
     Indication: RHEUMATOID ARTHRITIS
     Route: 042
     Dates: start: 20110513
  2. TOCILIZUMAB [Suspect]
     Route: 042
     Dates: start: 20120411, end: 20120801
  3. LIPITOR [Concomitant]
     Route: 065
     Dates: end: 20121105
  4. FOLIC ACID [Concomitant]
     Route: 065
     Dates: end: 20121105
  5. BABY ASPIRIN [Concomitant]
     Route: 065
     Dates: end: 20121105
  6. ALFUZOSIN [Concomitant]
     Route: 065
     Dates: end: 20121105
  7. LEFLUNOMIDE [Concomitant]
     Route: 065
     Dates: end: 20121105

REACTIONS (1)
  - Pancreatic carcinoma [Fatal]
